FAERS Safety Report 6815047-5 (Version None)
Quarter: 2010Q3

REPORT INFORMATION
  Report Type: 
  Country: None (occurrence: None)
  Receive Date: 20100702
  Receipt Date: 20090526
  Transmission Date: 20110219
  Serious: No
  Sender: FDA-Public Use
  Company Number: A0786132A

PATIENT
  Age: 68 Year
  Sex: Female

DRUGS (3)
  1. PARNATE [Suspect]
     Indication: DEPRESSION
     Dosage: 60MG PER DAY
     Route: 048
     Dates: start: 19890101
  2. XANAX [Concomitant]
  3. ARIMIDEX [Concomitant]

REACTIONS (2)
  - ADRENAL ADENOMA [None]
  - METANEPHRINE URINE INCREASED [None]
